FAERS Safety Report 5821880-9 (Version None)
Quarter: 2008Q3

REPORT INFORMATION
  Report Type: 
  Country: None (occurrence: None)
  Receive Date: 20080724
  Receipt Date: 20080712
  Transmission Date: 20090109
  Serious: Yes (Other)
  Sender: FDA-Public Use
  Company Number: US-PFIZER INC-2008051843

PATIENT
  Sex: Female
  Weight: 76.7 kg

DRUGS (5)
  1. LYRICA [Suspect]
     Indication: BURNING SENSATION
  2. LYRICA [Suspect]
     Indication: FIBROMYALGIA
  3. ROBAXIN [Suspect]
  4. AMITRIPTYLINE HCL [Concomitant]
  5. HYDROCODONE BITARTRATE [Concomitant]

REACTIONS (1)
  - HYPERTENSION [None]
